FAERS Safety Report 5376907-8 (Version None)
Quarter: 2007Q2

REPORT INFORMATION
  Report Type: 
  Country: None (occurrence: None)
  Receive Date: 20070628
  Receipt Date: 20070628
  Transmission Date: 20071010
  Serious: No
  Sender: FDA-Public Use
  Company Number: None

PATIENT
  Age: 27 Year
  Sex: Male

DRUGS (1)
  1. PENICILLIN G POTASSIUM [Suspect]
     Indication: TOOTH ABSCESS
     Dosage: 2,000,000 UNITS IV
     Route: 042
     Dates: start: 20070613

REACTIONS (2)
  - INFUSION RELATED REACTION [None]
  - MUSCLE SPASMS [None]
